FAERS Safety Report 9731514 (Version 1)
Quarter: 2013Q4

REPORT INFORMATION
  Report Type: Spontaneous
  Country: NL (occurrence: NL)
  Receive Date: 20131205
  Receipt Date: 20131205
  Transmission Date: 20140711
  Serious: Yes (Disabling)
  Sender: FDA-Public Use
  Company Number: NL-ACCORD-020527

PATIENT
  Sex: Female

DRUGS (4)
  1. LETROZOLE [Suspect]
     Indication: BREAST CANCER METASTATIC
  2. FENTANYL [Suspect]
     Indication: BREAST CANCER METASTATIC
  3. XGEVA [Suspect]
     Indication: BREAST CANCER METASTATIC
  4. ZOLADEX [Suspect]
     Indication: BREAST CANCER METASTATIC

REACTIONS (4)
  - Visual acuity reduced [Unknown]
  - Head discomfort [Unknown]
  - Insomnia [Unknown]
  - Decreased appetite [Unknown]
